FAERS Safety Report 5897095-5 (Version None)
Quarter: 2008Q3

REPORT INFORMATION
  Report Type: 
  Country: None (occurrence: None)
  Receive Date: 20080924
  Receipt Date: 20080623
  Transmission Date: 20090109
  Serious: Yes (Hospitalization)
  Sender: FDA-Public Use
  Company Number: US-ASTRAZENECA-2008UW12599

PATIENT
  Age: 25 Year
  Sex: Male

DRUGS (4)
  1. SEROQUEL [Suspect]
     Route: 048
     Dates: start: 20080601
  2. SEROQUEL [Suspect]
     Route: 048
     Dates: start: 20080601
  3. SEROQUEL [Suspect]
     Route: 048
     Dates: start: 20080611
  4. LITHIUM CARBONATE [Concomitant]

REACTIONS (1)
  - CONVULSION [None]
